FAERS Safety Report 7010941-7 (Version None)
Quarter: 2010Q3

REPORT INFORMATION
  Report Type: 
  Country: None (occurrence: None)
  Receive Date: 20100922
  Receipt Date: 20100922
  Transmission Date: 20110219
  Serious: Yes (Other)
  Sender: FDA-Public Use
  Company Number: None

PATIENT
  Sex: Male
  Weight: 92.9874 kg

DRUGS (4)
  1. RISPERDAL CONSTA [Suspect]
     Dosage: 50 MG 3 TIMES EVERY 14 DAYS
     Dates: start: 20100609
  2. RISPERDAL CONSTA [Suspect]
     Dosage: 25 MG ONCE JUNE 2010
     Dates: start: 20100820
  3. RISPERDAL CONSTA [Suspect]
     Dosage: 25 MG ONCE JUNE 2010
     Dates: start: 20100824
  4. RISPERDAL CONSTA [Suspect]
     Dosage: 25 MG ONCE JUNE 2010
     Dates: start: 20100901

REACTIONS (9)
  - BACK PAIN [None]
  - BRUXISM [None]
  - FATIGUE [None]
  - GAIT DISTURBANCE [None]
  - HYPOAESTHESIA [None]
  - MUSCLE SPASMS [None]
  - PAIN [None]
  - PAIN IN EXTREMITY [None]
  - PAIN IN JAW [None]
